FAERS Safety Report 23631463 (Version 4)
Quarter: 2024Q1

REPORT INFORMATION
  Report Type: Spontaneous
  Country: US (occurrence: US)
  Receive Date: 20240314
  Receipt Date: 20240322
  Transmission Date: 20240409
  Serious: No
  Sender: FDA-Public Use
  Company Number: US-PFIZER INC-202400063807

PATIENT
  Age: 78 Year
  Sex: Female
  Weight: 54.43 kg

DRUGS (4)
  1. ESTRING [Suspect]
     Active Substance: ESTRADIOL
     Indication: Vaginal disorder
     Dosage: 1 RING VAGINALLY EVERY 3 MONTHS
     Route: 067
  2. FOSAMAX [Concomitant]
     Active Substance: ALENDRONATE SODIUM
     Dosage: 70 MG
  3. LISINOPRIL [Concomitant]
     Active Substance: LISINOPRIL
     Dosage: 5 MG
  4. ROSUVASTATIN [Concomitant]
     Active Substance: ROSUVASTATIN
     Indication: Blood cholesterol increased
     Dosage: 10 MG

REACTIONS (4)
  - Impaired driving ability [Unknown]
  - Fear [Unknown]
  - Nervousness [Unknown]
  - Anxiety [Unknown]
